FAERS Safety Report 4750781-2 (Version None)
Quarter: 2005Q3

REPORT INFORMATION
  Report Type: 
  Country: None (occurrence: None)
  Receive Date: 20050823
  Receipt Date: 20050713
  Transmission Date: 20060218
  Serious: Yes (Hospitalization, Disabling)
  Sender: FDA-Public Use
  Company Number: US-MERCK-0507USA01862

PATIENT
  Age: 56 Year
  Sex: Female
  Weight: 82 kg

DRUGS (5)
  1. VIOXX [Suspect]
     Indication: ARTHRITIS
     Route: 048
     Dates: end: 20040323
  2. PROZAC [Concomitant]
     Route: 065
  3. XANAX [Concomitant]
     Route: 065
  4. TAGAMET [Concomitant]
     Route: 065
  5. DARVOCET-N 100 [Concomitant]
     Route: 065

REACTIONS (3)
  - CARDIAC DISORDER [None]
  - EMOTIONAL DISORDER [None]
  - MYOCARDIAL INFARCTION [None]
